FAERS Safety Report 5027922-5 (Version None)
Quarter: 2006Q2

REPORT INFORMATION
  Report Type: 
  Country: None (occurrence: None)
  Receive Date: 20060616
  Receipt Date: 20060609
  Transmission Date: 20061013
  Serious: Yes (Other)
  Sender: FDA-Public Use
  Company Number: US-AMGEN-US182432

PATIENT
  Sex: Female

DRUGS (7)
  1. ARANESP [Suspect]
     Indication: DIALYSIS
     Route: 058
     Dates: end: 20060601
  2. EPOGEN [Suspect]
     Indication: DIALYSIS
  3. NEXIUM [Concomitant]
  4. SYNTHROID [Concomitant]
  5. NEPHRO-CAPS [Concomitant]
  6. LOPRESSOR [Concomitant]
  7. INSULIN [Concomitant]

REACTIONS (2)
  - APLASIA PURE RED CELL [None]
  - MALNUTRITION [None]
